FAERS Safety Report 10484373 (Version 1)
Quarter: 2014Q3

REPORT INFORMATION
  Report Type: Spontaneous
  Country: ES (occurrence: ES)
  Receive Date: 20140930
  Receipt Date: 20140930
  Transmission Date: 20150326
  Serious: Yes (Other)
  Sender: FDA-Public Use
  Company Number: ES-MYLANLABS-2014M1005724

PATIENT

DRUGS (1)
  1. ENALAPRIL [Suspect]
     Active Substance: ENALAPRIL
     Route: 065

REACTIONS (5)
  - Dysphonia [Unknown]
  - Hypersensitivity [Unknown]
  - Choking [Unknown]
  - Cough [Unknown]
  - Hiccups [Recovered/Resolved]
